FAERS Safety Report 12958165 (Version 1)
Quarter: 2016Q4

REPORT INFORMATION
  Report Type: Spontaneous
  Country: US (occurrence: US)
  Receive Date: 20161120
  Receipt Date: 20161120
  Transmission Date: 20170207
  Serious: No
  Sender: FDA-Public Use
  Company Number: PHHY2016US158887

PATIENT
  Age: 61 Year
  Sex: Male

DRUGS (1)
  1. CAMBIA [Suspect]
     Active Substance: DICLOFENAC POTASSIUM
     Indication: NEW DAILY PERSISTENT HEADACHE
     Dosage: 50 MG, UNK (1 TO 2 OUNCES OF WATER TO BE DRANK IMMEDIATELY)
     Route: 048
     Dates: start: 20160930

REACTIONS (2)
  - Product use issue [Not Recovered/Not Resolved]
  - Drug ineffective [Not Recovered/Not Resolved]

NARRATIVE: CASE EVENT DATE: 20160930
